FAERS Safety Report 21174247 (Version 1)
Quarter: 2022Q3

REPORT INFORMATION
  Report Type: Spontaneous
  Country: GB (occurrence: GB)
  Receive Date: 20220804
  Receipt Date: 20220804
  Transmission Date: 20221027
  Serious: Yes (Other)
  Sender: FDA-Public Use
  Company Number: GB-MHRA-MED-202205201526142470-QLQ4S

PATIENT
  Sex: Female

DRUGS (1)
  1. ESCITALOPRAM OXALATE [Suspect]
     Active Substance: ESCITALOPRAM OXALATE
     Indication: Depression
     Dosage: 20MG ONCE IN THE MORNING
     Dates: start: 20210901

REACTIONS (1)
  - Tunnel vision [Recovered/Resolved with Sequelae]

NARRATIVE: CASE EVENT DATE: 20210901
